FAERS Safety Report 9278446 (Version 1)
Quarter: 2013Q2

REPORT INFORMATION
  Report Type: Spontaneous
  Country: US (occurrence: None)
  Receive Date: 20130506
  Receipt Date: 20130506
  Transmission Date: 20140414
  Serious: No
  Sender: FDA-Public Use
  Company Number: None

PATIENT
  Age: 38 Year
  Sex: Male
  Weight: 78.02 kg

DRUGS (2)
  1. TRAMADOL [Suspect]
     Indication: ARTHRITIS
     Dosage: 50MG-100MG BID PO?
     Route: 048
     Dates: start: 20130205, end: 20130529
  2. TRAMADOL [Suspect]
     Indication: EXOSTOSIS
     Dosage: 50MG-100MG BID PO?
     Route: 048
     Dates: start: 20130205, end: 20130529

REACTIONS (7)
  - Withdrawal syndrome [None]
  - Agitation [None]
  - Insomnia [None]
  - Paraesthesia [None]
  - Tinnitus [None]
  - Vomiting [None]
  - Suicidal ideation [None]
